FAERS Safety Report 6450252-1 (Version None)
Quarter: 2009Q4

REPORT INFORMATION
  Report Type: 
  Country: None (occurrence: None)
  Receive Date: 20091123
  Receipt Date: 20091113
  Transmission Date: 20100525
  Serious: Yes (Other)
  Sender: FDA-Public Use
  Company Number: CO-ROCHE-668827

PATIENT
  Sex: Female

DRUGS (3)
  1. XENICAL [Suspect]
     Indication: OVERWEIGHT
     Dosage: FREQUENCY: QD
     Route: 048
     Dates: start: 20080501, end: 20090901
  2. LOSARTAN POTASSIUM [Concomitant]
     Route: 048
  3. METOPROLOL TARTRATE [Concomitant]
     Route: 048

REACTIONS (3)
  - ATRIOVENTRICULAR BLOCK [None]
  - HYPOKALAEMIA [None]
  - SYNCOPE [None]
